FAERS Safety Report 8506145-9 (Version None)
Quarter: 2012Q3

REPORT INFORMATION
  Report Type: 
  Country: None (occurrence: None)
  Receive Date: 20120706
  Receipt Date: 20120706
  Transmission Date: 20120928
  Serious: Yes (Hospitalization)
  Sender: FDA-Public Use
  Company Number: None

PATIENT
  Age: 65 Year
  Sex: Male
  Weight: 104.5 kg

DRUGS (1)
  1. LITHIUM CARBONATE [Suspect]
     Indication: BIPOLAR I DISORDER
     Dosage: 600 MG BID PO
     Route: 048
     Dates: start: 20120430, end: 20120521

REACTIONS (15)
  - THINKING ABNORMAL [None]
  - INCORRECT DOSE ADMINISTERED [None]
  - DEHYDRATION [None]
  - VOMITING [None]
  - CONDITION AGGRAVATED [None]
  - DEPRESSION [None]
  - IRRITABILITY [None]
  - AFFECTIVE DISORDER [None]
  - ELECTROLYTE IMBALANCE [None]
  - TREMOR [None]
  - NAUSEA [None]
  - PSYCHOTIC DISORDER [None]
  - TOXICITY TO VARIOUS AGENTS [None]
  - TREATMENT NONCOMPLIANCE [None]
  - APHAGIA [None]
